FAERS Safety Report 6488663-0 (Version None)
Quarter: 2009Q4

REPORT INFORMATION
  Report Type: 
  Country: None (occurrence: None)
  Receive Date: 20091210
  Receipt Date: 20091130
  Transmission Date: 20100525
  Serious: Yes (Life-Threatening, Hospitalization, Other)
  Sender: FDA-Public Use
  Company Number: CZ-PFIZER INC-2009300835

PATIENT
  Age: 55 Year
  Sex: Female

DRUGS (19)
  1. SERTRALINE HCL [Suspect]
     Indication: DEPRESSION
     Dosage: 100 MG, 1X/DAY
  2. SERTRALINE HCL [Suspect]
     Dosage: 200 MG, 1X/DAY
  3. SERTRALINE HCL [Suspect]
     Dosage: 150 MG, 1X/DAY
  4. RISPERIDONE [Suspect]
     Indication: PSYCHOTIC DISORDER
     Dosage: 1 MG, 1X/DAY
  5. LEVOTHYROXINE SODIUM [Suspect]
     Dosage: 0.05 MG, 1X/DAY
  6. BETAMETHASONE BENZOATE [Suspect]
  7. LITHIUM CARBONATE [Suspect]
     Dosage: 625 MG, 1X/DAY
  8. LITHIUM CARBONATE [Suspect]
     Dosage: 900 MG, 1X/DAY
  9. LORAZEPAM [Suspect]
     Dosage: 4 MG, 1X/DAY
  10. LORAZEPAM [Suspect]
     Dosage: 2 MG, 1X/DAY
  11. LORAZEPAM [Suspect]
     Dosage: 3 MG, 1X/DAY
  12. ARIPIPRAZOLE [Suspect]
     Indication: PSYCHOTIC DISORDER
     Dosage: 60 MG, 1X/DAY
  13. ARIPIPRAZOLE [Suspect]
     Dosage: 45 MG, 1X/DAY
  14. ARIPIPRAZOLE [Suspect]
     Dosage: 30 MG, 1X/DAY
  15. ARIPIPRAZOLE [Suspect]
     Dosage: DOSE HALVED EVERY TWO DAYS
  16. QUETIAPINE [Suspect]
     Dosage: 200 MG, 1X/DAY
  17. MAGNESIUM [Suspect]
     Dosage: 7.5 MG, 1X/DAY
  18. OLANZAPINE [Suspect]
     Indication: PSYCHOTIC DISORDER
     Dosage: 10 MG, 1X/DAY
  19. PRAVASTATIN [Suspect]
     Dosage: UNK

REACTIONS (6)
  - DEPRESSION [None]
  - EOSINOPHILIA [None]
  - FATIGUE [None]
  - HALLUCINATION, AUDITORY [None]
  - RASH ERYTHEMATOUS [None]
  - SUICIDE ATTEMPT [None]
